FAERS Safety Report 22860846 (Version 3)
Quarter: 2023Q4

REPORT INFORMATION
  Report Type: Spontaneous
  Country: DE (occurrence: DE)
  Receive Date: 20230824
  Receipt Date: 20231023
  Transmission Date: 20240110
  Serious: No
  Sender: FDA-Public Use
  Company Number: DE-PFIZER INC-PV202300141732

PATIENT
  Age: 25 Year
  Sex: Female
  Weight: 85 kg

DRUGS (1)
  1. MEDROXYPROGESTERONE [Suspect]
     Active Substance: MEDROXYPROGESTERONE
     Indication: Contraception
     Dosage: UNK

REACTIONS (3)
  - Syringe issue [Recovered/Resolved]
  - Device leakage [Recovered/Resolved]
  - Incorrect dose administered by device [Recovered/Resolved]

NARRATIVE: CASE EVENT DATE: 20230801
